FAERS Safety Report 7990351-6 (Version None)
Quarter: 2011Q4

REPORT INFORMATION
  Report Type: 
  Country: None (occurrence: None)
  Receive Date: 20111219
  Receipt Date: 20110912
  Transmission Date: 20120403
  Serious: No
  Sender: FDA-Public Use
  Company Number: US-ASTRAZENECA-2011SE54612

PATIENT
  Age: 83 Year
  Sex: Male

DRUGS (6)
  1. BYSTOLIC [Concomitant]
     Indication: CARDIAC DISORDER
  2. ASPIRIN [Concomitant]
     Indication: CARDIAC DISORDER
  3. MICARDIS [Concomitant]
     Indication: CARDIAC DISORDER
  4. CRESTOR [Suspect]
     Indication: HYPERCHOLESTEROLAEMIA
     Route: 048
     Dates: start: 20100308
  5. CRESTOR [Suspect]
     Route: 048
  6. COENZYME Q10 [Concomitant]

REACTIONS (2)
  - MUSCULAR WEAKNESS [None]
  - MUSCLE ATROPHY [None]
